FAERS Safety Report 5509658-7 (Version None)
Quarter: 2007Q4

REPORT INFORMATION
  Report Type: 
  Country: None (occurrence: None)
  Receive Date: 20071108
  Receipt Date: 20071108
  Transmission Date: 20080405
  Serious: Yes (Death, Hospitalization)
  Sender: FDA-Public Use
  Company Number: PHHO2005US10718

PATIENT
  Age: 81 Year
  Sex: Male
  Weight: 90.6 kg

DRUGS (7)
  1. ZOLEDRONIC ACID [Suspect]
     Indication: OSTEOPOROTIC FRACTURE
     Dosage: DOUBLE-BLIND
     Route: 042
     Dates: start: 20021107
  2. CALCIUM CARBONATE [Concomitant]
     Indication: OSTEOPOROTIC FRACTURE
  3. VITAMIN D [Concomitant]
     Indication: OSTEOPOROTIC FRACTURE
  4. BACLOFEN [Suspect]
  5. ATIVAN [Suspect]
  6. PENTOXIFYLLINE [Suspect]
  7. LASIX [Suspect]

REACTIONS (17)
  - ADRENAL ADENOMA [None]
  - ANAEMIA [None]
  - BLADDER CANCER [None]
  - BLADDER MASS [None]
  - CONFUSIONAL STATE [None]
  - DEHYDRATION [None]
  - GENERAL PHYSICAL HEALTH DETERIORATION [None]
  - HAEMATOCRIT DECREASED [None]
  - HAEMATURIA [None]
  - HAEMOGLOBIN DECREASED [None]
  - HYPOKALAEMIA [None]
  - HYPONATRAEMIA [None]
  - HYPOTENSION [None]
  - MENTAL STATUS CHANGES [None]
  - SEDATION [None]
  - SYNCOPE [None]
  - URINARY TRACT INFECTION [None]
